FAERS Safety Report 4711554-X (Version None)
Quarter: 2005Q3

REPORT INFORMATION
  Report Type: 
  Country: None (occurrence: None)
  Receive Date: 20050708
  Receipt Date: 20050708
  Transmission Date: 20060218
  Serious: Yes (Death)
  Sender: FDA-Public Use
  Company Number: None

PATIENT
  Sex: Male
  Weight: 84.8226 kg

DRUGS (18)
  1. FLUOROURACIL [Suspect]
     Indication: COLORECTAL CANCER
     Dosage: 780 MG IV BOLUS Q 2 WKS
     Route: 042
     Dates: start: 20050503, end: 20050601
  2. FLUOROURACIL [Suspect]
     Indication: COLORECTAL CANCER
     Dosage: 2340 MG IV OVER 44HRS Q2
     Route: 042
     Dates: start: 20050503, end: 20050602
  3. XELODA [Suspect]
     Indication: COLORECTAL CANCER
     Dosage: 3600MG/DAY X 14 DAYS PO
     Route: 048
     Dates: start: 20050615, end: 20050628
  4. AVASTIN [Suspect]
     Indication: COLORECTAL CANCER
     Dosage: 850MG Q 2WKS IV
     Route: 042
     Dates: start: 20050503, end: 20050614
  5. INVESTIGATIONAL PRODUCT [Suspect]
     Indication: COLORECTAL CANCER
     Dosage: 510MG Q 2 WKS IV
     Route: 042
     Dates: start: 20050503, end: 20050601
  6. AVAPRO [Concomitant]
  7. ACTOS [Concomitant]
  8. COREG [Concomitant]
  9. ZOCOR [Concomitant]
  10. LASIX [Concomitant]
  11. ALAVERT [Concomitant]
  12. DECADRON [Concomitant]
  13. ANZEMET [Concomitant]
  14. LEUCOVORIN [Concomitant]
  15. XELODA [Concomitant]
  16. OXALIPLATIN [Concomitant]
  17. COMPAZINE [Concomitant]
  18. GLYBURIDE AND METFORMIN HCL [Concomitant]

REACTIONS (3)
  - CARDIAC ARREST [None]
  - MYOCARDIAL INFARCTION [None]
  - RASH [None]
